FAERS Safety Report 20843857 (Version 1)
Quarter: 2022Q2

REPORT INFORMATION
  Report Type: Spontaneous
  Country: US (occurrence: None)
  Receive Date: 20220517
  Receipt Date: 20220517
  Transmission Date: 20220721
  Serious: No
  Sender: FDA-Public Use
  Company Number: None

PATIENT
  Age: 83 Year
  Sex: Female
  Weight: 69.9 kg

DRUGS (13)
  1. CAPECITABINE [Suspect]
     Active Substance: CAPECITABINE
     Indication: Breast cancer female
     Dosage: OTHER QUANTITY : 1500-1000MG;?FREQUENCY : EVERY 12 HOURS;?
     Route: 048
  2. AMLODIPINE BESYLATE [Concomitant]
     Active Substance: AMLODIPINE BESYLATE
  3. ASCORBIC ACID [Concomitant]
     Active Substance: ASCORBIC ACID
  4. ASPIRIN [Concomitant]
     Active Substance: ASPIRIN
  5. ATORVASTATIN [Concomitant]
     Active Substance: ATORVASTATIN
  6. CINNAMON [Concomitant]
     Active Substance: CINNAMON
  7. COCONUT OIL [Concomitant]
     Active Substance: COCONUT OIL
  8. FLAX [Concomitant]
  9. FISH OIL EXTRA STRENGTH [Concomitant]
  10. GINGER [Concomitant]
     Active Substance: GINGER
  11. GINSING [Concomitant]
  12. GLUCOSAMINE 1500 COMPLEX [Concomitant]
  13. LOSARTAN POTASSIUM [Concomitant]
     Active Substance: LOSARTAN POTASSIUM

REACTIONS (1)
  - Palmar-plantar erythrodysaesthesia syndrome [None]
